FAERS Safety Report 6234795-1 (Version None)
Quarter: 2009Q2

REPORT INFORMATION
  Report Type: 
  Country: None (occurrence: None)
  Receive Date: 20090615
  Receipt Date: 20090414
  Transmission Date: 20091009
  Serious: No
  Sender: FDA-Public Use
  Company Number: DSA_33509_2009

PATIENT
  Sex: Female

DRUGS (9)
  1. XENAZINE [Suspect]
     Indication: HUNTINGTON'S CHOREA
     Dosage: 12.5 MG QD, 12.5 MG BID
     Dates: start: 20090310, end: 20090317
  2. XENAZINE [Suspect]
     Indication: HUNTINGTON'S CHOREA
     Dosage: 12.5 MG QD, 12.5 MG BID
     Dates: start: 20090318, end: 20090326
  3. AMBIEN [Concomitant]
  4. PEPCID [Concomitant]
  5. SYNTHROID [Concomitant]
  6. MIRALAX [Concomitant]
  7. PHENOBARBITAL [Concomitant]
  8. PROZAC [Concomitant]
  9. LACTULOSE [Concomitant]

REACTIONS (2)
  - INSOMNIA [None]
  - RESTLESSNESS [None]
